FAERS Safety Report 6022639-2 (Version None)
Quarter: 2008Q4

REPORT INFORMATION
  Report Type: 
  Country: None (occurrence: None)
  Receive Date: 20081223
  Receipt Date: 20081214
  Transmission Date: 20090506
  Serious: Yes (Other)
  Sender: FDA-Public Use
  Company Number: ENTC2008-0417

PATIENT
  Age: 70 Year
  Sex: Female

DRUGS (1)
  1. STALEVO 100 [Suspect]
     Indication: PARKINSON'S DISEASE
     Dosage: 3 TABS(L100/C25/E200 MG)/DAY, ORAL;  2 TABS (L100/C75/E200MG/DAY, ORAL
     Route: 048
     Dates: start: 20060101

REACTIONS (2)
  - INCOHERENT [None]
  - MOVEMENT DISORDER [None]
